FAERS Safety Report 13982538 (Version 1)
Quarter: 2017Q3

REPORT INFORMATION
  Report Type: Spontaneous
  Country: US (occurrence: US)
  Receive Date: 20170918
  Receipt Date: 20170918
  Transmission Date: 20171128
  Serious: No
  Sender: FDA-Public Use
  Company Number: US-LEADIANT BIOSCIENCES INC-2016STPI000554

PATIENT
  Sex: Male

DRUGS (5)
  1. MATULANE [Suspect]
     Active Substance: PROCARBAZINE HYDROCHLORIDE
     Indication: BRAIN NEOPLASM MALIGNANT
     Dosage: QD FOR 14 DAYS OF EACH CYCLE
     Route: 048
     Dates: start: 201606
  2. SANCUSO [Concomitant]
     Active Substance: GRANISETRON
  3. LEVETIRACETAM. [Concomitant]
     Active Substance: LEVETIRACETAM
  4. LOMUSTINE. [Concomitant]
     Active Substance: LOMUSTINE
  5. EMEND [Concomitant]
     Active Substance: APREPITANT

REACTIONS (1)
  - Rash [Not Recovered/Not Resolved]
